FAERS Safety Report 9765147 (Version 1)
Quarter: 2013Q4

REPORT INFORMATION
  Report Type: Spontaneous
  Country: US (occurrence: US)
  Receive Date: 20131217
  Receipt Date: 20131217
  Transmission Date: 20140711
  Serious: No
  Sender: FDA-Public Use
  Company Number: US-GLAXOSMITHKLINE-A0999753A

PATIENT
  Age: 59 Year
  Sex: Male

DRUGS (3)
  1. VOTRIENT [Suspect]
     Indication: RENAL CELL CARCINOMA
     Dosage: 800MG PER DAY
     Route: 048
     Dates: start: 20120731
  2. LEVOTHROID [Concomitant]
     Indication: THYROID DISORDER
     Route: 048
  3. DEXILANT [Concomitant]
     Route: 048

REACTIONS (1)
  - Diarrhoea [Recovered/Resolved]
